FAERS Safety Report 21432627 (Version 4)
Quarter: 2023Q2

REPORT INFORMATION
  Report Type: Report from Study
  Country: US (occurrence: US)
  Receive Date: 20221010
  Receipt Date: 20230420
  Transmission Date: 20230721
  Serious: Yes (Hospitalization, Other)
  Sender: FDA-Public Use
  Company Number: US-ABBVIE-4143862

PATIENT
  Age: 62 Year
  Sex: Male

DRUGS (2)
  1. VENCLEXTA [Suspect]
     Active Substance: VENETOCLAX
     Indication: Chronic lymphocytic leukaemia
     Route: 048
     Dates: start: 20220704
  2. VENCLEXTA [Suspect]
     Active Substance: VENETOCLAX
     Indication: Chronic lymphocytic leukaemia
     Route: 048
     Dates: start: 202204

REACTIONS (12)
  - Hospitalisation [Unknown]
  - Chest discomfort [Unknown]
  - Pulmonary amyloidosis [Unknown]
  - Feeling abnormal [Unknown]
  - Ear, nose and throat disorder [Unknown]
  - Sinusitis [Unknown]
  - Infection [Unknown]
  - Pneumonia [Unknown]
  - Hernia [Unknown]
  - Sputum discoloured [Unknown]
  - Deafness [Unknown]
  - Oropharyngeal discomfort [Unknown]

NARRATIVE: CASE EVENT DATE: 20220701
